FAERS Safety Report 17667085 (Version 1)
Quarter: 2020Q3

REPORT INFORMATION
  Report Type: Report from Study
  Country: JP (occurrence: JP)
  Receive Date: 20200414
  Receipt Date: 20200414
  Transmission Date: 20201105
  Serious: Yes (Hospitalization)
  Sender: FDA-Public Use
  Company Number: JP-DSJP-DSJ-2019-108180AA

PATIENT

DRUGS (21)
  1. SODIUM FERRIC CITRATE [Concomitant]
     Active Substance: FERRIC SODIUM CITRATE
     Indication: ANAEMIA
     Dosage: 100 MG, BID
     Route: 048
     Dates: start: 20180227
  2. ADETPHOS [Concomitant]
     Active Substance: ADENOSINE TRIPHOSPHATE
     Indication: DIZZINESS
     Dosage: 1 G, TID
     Route: 048
     Dates: start: 20190108
  3. LOXOPROFEN SODIUM HYDRATE [Concomitant]
     Active Substance: LOXOPROFEN SODIUM DIHYDRATE
     Indication: PYREXIA
     Dosage: 60 MG, AS NEEDED
     Route: 048
     Dates: start: 20180128
  4. REBAMIPIDE [Concomitant]
     Active Substance: REBAMIPIDE
     Indication: GASTRITIS PROPHYLAXIS
     Dosage: 100 MG, AS NEEDED
     Route: 048
     Dates: start: 20180323
  5. SAIREITO                           /08000901/ [Concomitant]
     Active Substance: HERBALS
     Indication: OEDEMA
     Dosage: 3 G, TID
     Route: 048
     Dates: start: 20181114
  6. AZOSEMIDE [Concomitant]
     Active Substance: AZOSEMIDE
     Indication: CARDIOMYOPATHY
     Dosage: 30 MG, QD
     Route: 048
     Dates: start: 20181228
  7. BETAHISTINE MESILATE [Concomitant]
     Active Substance: BETAHISTINE MESILATE
     Indication: DIZZINESS
     Dosage: 6 MG, TID
     Route: 048
     Dates: start: 20190108
  8. AZUNOL                             /00317302/ [Concomitant]
     Indication: SKIN ULCER
     Dosage: UNK, QD
     Route: 062
     Dates: start: 20180921
  9. BISOPROLOL FUMARATE. [Concomitant]
     Active Substance: BISOPROLOL FUMARATE
     Indication: CARDIOMYOPATHY
     Dosage: 0.625 MG, QD
     Route: 048
     Dates: start: 20181228
  10. METOCLOPRAMIDE. [Concomitant]
     Active Substance: METOCLOPRAMIDE
     Indication: GASTROINTESTINAL DISORDER
     Dosage: 5 MG, TID
     Route: 048
     Dates: start: 20180803
  11. PERINDOPRIL ERBUMINE. [Concomitant]
     Active Substance: PERINDOPRIL ERBUMINE
     Indication: HYPERTENSION
     Dosage: 2 MG, QD
     Route: 048
     Dates: start: 20181130
  12. SOLDACTONE [Concomitant]
     Active Substance: CANRENOATE POTASSIUM
     Indication: EJECTION FRACTION DECREASED
     Dosage: 200 MG, QD
     Route: 042
     Dates: start: 20190311, end: 20190322
  13. TRASTUZUMAB DERUXTECAN. [Suspect]
     Active Substance: TRASTUZUMAB DERUXTECAN
     Dosage: 5.4 MG/KG, ONCE EVERY 3 WK
     Route: 041
     Dates: start: 20190128, end: 20190220
  14. METHYCOBAL [Concomitant]
     Active Substance: METHYLCOBALAMIN
     Indication: DIZZINESS
     Dosage: 500 UG, TID
     Route: 048
     Dates: start: 20181228
  15. ROZEX (METRONIDAZOLE) [Concomitant]
     Active Substance: METRONIDAZOLE
     Indication: SKIN ULCER
     Dosage: UNK, QD
     Route: 062
     Dates: start: 20180921
  16. GOSHAJINKIGAN [Concomitant]
     Active Substance: HERBALS
     Indication: NEUROPATHY PERIPHERAL
     Dosage: 2.5 G, TID
     Route: 048
     Dates: start: 20181130
  17. MIYA?BM [Concomitant]
     Active Substance: CLOSTRIDIUM BUTYRICUM SPORES STRAIN M-55
     Indication: GASTROINTESTINAL DISORDER
     Dosage: 1 G, TID
     Route: 048
     Dates: start: 20180804
  18. URSODEOXYCHOLIC ACID [Concomitant]
     Active Substance: URSODIOL
     Indication: HEPATIC FAILURE
     Dosage: 100 MG, TID
     Route: 048
     Dates: start: 20180326
  19. ALBUMIN BEHRING [Concomitant]
     Active Substance: ALBUMIN HUMAN
     Indication: HYPOALBUMINAEMIA
     Dosage: 20 G, QD
     Route: 042
     Dates: start: 20190311, end: 20190316
  20. K.C.L. [Concomitant]
     Indication: FATIGUE
     Dosage: 10 MEQ, QD
     Route: 042
     Dates: start: 20190304, end: 20190311
  21. ARASENA A [Concomitant]
     Active Substance: VIDARABINE
     Indication: ANGULAR CHEILITIS
     Dosage: UNK, QD
     Route: 062
     Dates: start: 20190220

REACTIONS (3)
  - Pulmonary oedema [Recovered/Resolved]
  - Fatigue [Not Recovered/Not Resolved]
  - Pneumonitis [Recovered/Resolved]

NARRATIVE: CASE EVENT DATE: 20190304
